FAERS Safety Report 5305089-3 (Version None)
Quarter: 2007Q2

REPORT INFORMATION
  Report Type: 
  Country: None (occurrence: None)
  Receive Date: 20070417
  Receipt Date: 20070405
  Transmission Date: 20071010
  Serious: Yes (Other)
  Sender: FDA-Public Use
  Company Number: 163-21880-07040570

PATIENT
  Age: 51 Year
  Sex: Female

DRUGS (9)
  1. REVLIMID [Suspect]
     Indication: MULTIPLE MYELOMA
     Dosage: 15 MG, 1 IN 1 D, ORAL
     Route: 048
     Dates: start: 20060930, end: 20061201
  2. DEXAMETHASONE TAB [Suspect]
     Indication: DRUG USE FOR UNKNOWN INDICATION
  3. COUMADIN [Concomitant]
  4. CELEBREX [Concomitant]
  5. IBUPROFEN [Concomitant]
  6. FAMVIR [Concomitant]
  7. SYNTHROID [Concomitant]
  8. LISINOPRIL [Concomitant]
  9. CARDIAC MEDS (CARDIAC THERAPY) [Concomitant]

REACTIONS (1)
  - EJECTION FRACTION DECREASED [None]
